FAERS Safety Report 5631584-3 (Version None)
Quarter: 2008Q1

REPORT INFORMATION
  Report Type: 
  Country: None (occurrence: None)
  Receive Date: 20080215
  Receipt Date: 20080211
  Transmission Date: 20080703
  Serious: Yes (Hospitalization, Disabling)
  Sender: FDA-Public Use
  Company Number: WAES 0711USA02043

PATIENT
  Age: 56 Year
  Sex: Male
  Weight: 68.0396 kg

DRUGS (23)
  1. CAP VORINOSTAT 100 MG [Suspect]
     Indication: NON-SMALL CELL LUNG CANCER
     Dosage: 200 MG/ NID/ PO
     Route: 048
     Dates: start: 20070710, end: 20071025
  2. TAB ERLOTINIB HYDROCHLORIDE 150 MG [Suspect]
     Indication: NON-SMALL CELL LUNG CANCER
     Dosage: DAILY / PO
     Route: 048
     Dates: start: 20070710, end: 20071030
  3. ATIVAN [Suspect]
     Indication: ANXIETY
     Dosage: 1 MG/ TID
     Dates: start: 20071031, end: 20071102
  4. ALTACE [Concomitant]
  5. CENTRUM SILVER [Concomitant]
  6. EXCEDRIN (ACETAMINOPHEN (+) CAFF [Concomitant]
  7. LOMOTIL [Concomitant]
  8. SOMA [Concomitant]
  9. ZYRTEC-D [Concomitant]
  10. THERAPY UNSPECIFIED [Concomitant]
  11. ACETAMINOPHEN (+) HYDROCODONE BI [Concomitant]
  12. ASCORBIC ACID [Concomitant]
  13. CARISOPRODOL [Concomitant]
  14. CLINDAMYCIN HCL [Concomitant]
  15. DOXYCYCLINE [Concomitant]
  16. FOLIC ACID [Concomitant]
  17. INSULIN [Concomitant]
  18. INSULIN, ISOPHANE [Concomitant]
  19. PRAVASTATIN SODIUM [Concomitant]
  20. PROCHLORPERAZINE MALEATE [Concomitant]
  21. TEA [Concomitant]
  22. TURMERIC [Concomitant]
  23. VITAMIN B (UNSPECIFIED) [Concomitant]

REACTIONS (17)
  - ASTHENIA [None]
  - CONDITION AGGRAVATED [None]
  - DIABETES MELLITUS INADEQUATE CONTROL [None]
  - DIARRHOEA [None]
  - DISEASE PROGRESSION [None]
  - DISORIENTATION [None]
  - FALL [None]
  - LOSS OF CONSCIOUSNESS [None]
  - MUSCLE SPASMS [None]
  - NAUSEA [None]
  - PAIN [None]
  - PAIN IN EXTREMITY [None]
  - SYNCOPE [None]
  - TREMOR [None]
  - URINARY HESITATION [None]
  - URINARY RETENTION [None]
  - VOMITING [None]
